FAERS Safety Report 9435829 (Version 1)
Quarter: 2013Q3

REPORT INFORMATION
  Report Type: Spontaneous
  Country: AU (occurrence: AU)
  Receive Date: 20130801
  Receipt Date: 20130801
  Transmission Date: 20140515
  Serious: Yes (Disabling)
  Sender: FDA-Public Use
  Company Number: AU-ASTRAZENECA-2013SE56286

PATIENT
  Age: 60 Year
  Sex: 0

DRUGS (7)
  1. CRESTOR [Suspect]
     Indication: METABOLIC DISORDER
     Route: 048
     Dates: start: 20070201, end: 20120801
  2. ASCORBIC ACID [Concomitant]
  3. CANDESARTAN CILEXETIL [Concomitant]
  4. OMEGA-3-ACID ETHYL ESTERS [Concomitant]
  5. PANADOL [Concomitant]
  6. PERINDOPRIL [Concomitant]
  7. SANDRA CABOT^S LIVATONE LIVER TONIC [Concomitant]

REACTIONS (14)
  - Bursa disorder [Not Recovered/Not Resolved]
  - Gait disturbance [Not Recovered/Not Resolved]
  - Tendonitis [Not Recovered/Not Resolved]
  - Tendon disorder [Not Recovered/Not Resolved]
  - Exostosis [Not Recovered/Not Resolved]
  - Tendon calcification [Not Recovered/Not Resolved]
  - Muscle atrophy [Not Recovered/Not Resolved]
  - Periarticular disorder [Not Recovered/Not Resolved]
  - Dysstasia [Not Recovered/Not Resolved]
  - Activities of daily living impaired [Not Recovered/Not Resolved]
  - Pain in extremity [Not Recovered/Not Resolved]
  - Arthralgia [Not Recovered/Not Resolved]
  - Blood creatine phosphokinase increased [Not Recovered/Not Resolved]
  - Myopathy [Not Recovered/Not Resolved]
